FAERS Safety Report 24727720 (Version 1)
Quarter: 2024Q4

REPORT INFORMATION
  Report Type: Spontaneous
  Country: US (occurrence: None)
  Receive Date: 20241212
  Receipt Date: 20241212
  Transmission Date: 20250114
  Serious: Yes (Death)
  Sender: Public
  Company Number: None

PATIENT
  Age: 78 Year
  Sex: Male
  Weight: 94.5 kg

DRUGS (3)
  1. ROCEPHIN [Suspect]
     Active Substance: CEFTRIAXONE SODIUM
     Dates: start: 20241202
  2. DECADRON [Suspect]
     Active Substance: DEXAMETHASONE
  3. LIDOCAINE [Suspect]
     Active Substance: LIDOCAINE
     Dosage: OTHER QUANTITY : 500/50 MG/ML;?
     Dates: start: 20241202

REACTIONS (2)
  - Depressed level of consciousness [None]
  - Impaired driving ability [None]

NARRATIVE: CASE EVENT DATE: 20241202
